FAERS Safety Report 10521002 (Version 1)
Quarter: 2014Q4

REPORT INFORMATION
  Report Type: Spontaneous
  Country: US (occurrence: US)
  Receive Date: 20141016
  Receipt Date: 20141016
  Transmission Date: 20150528
  Serious: No
  Sender: FDA-Public Use
  Company Number: US-009507513-1410USA002700

PATIENT
  Sex: Female

DRUGS (1)
  1. DULERA [Suspect]
     Active Substance: FORMOTEROL FUMARATE DIHYDRATE\MOMETASONE FUROATE
     Indication: ASTHMA
     Dosage: ONE PUFF TWICE DAILY,STRENGTH STRENGTH 200MICROGRAM/5 MICROGRAM 1 STANDARD DOSE OF 13
     Route: 055
     Dates: start: 201401

REACTIONS (2)
  - Product quality issue [Unknown]
  - Drug dose omission [Unknown]
